FAERS Safety Report 9733551 (Version 1)
Quarter: 2013Q4

REPORT INFORMATION
  Report Type: Spontaneous
  Country: US (occurrence: US)
  Receive Date: 20131205
  Receipt Date: 20131205
  Transmission Date: 20140711
  Serious: Yes (Other)
  Sender: FDA-Public Use
  Company Number: US-ROCHE-1311098

PATIENT
  Sex: Female

DRUGS (4)
  1. LUCENTIS [Suspect]
     Indication: AGE-RELATED MACULAR DEGENERATION
     Route: 050
  2. AVASTIN [Suspect]
     Indication: MACULAR DEGENERATION
     Route: 050
  3. LUMIGAN [Concomitant]
     Indication: GLAUCOMA
  4. LUTEIN [Concomitant]

REACTIONS (7)
  - Ocular hyperaemia [Recovered/Resolved]
  - Vision blurred [Recovered/Resolved]
  - Nasal congestion [Recovered/Resolved]
  - Eye pain [Recovered/Resolved]
  - Eye swelling [Recovered/Resolved]
  - Vitreous floaters [Unknown]
  - Intraocular pressure increased [Unknown]
